FAERS Safety Report 24057835 (Version 2)
Quarter: 2024Q3

REPORT INFORMATION
  Report Type: Report from Study
  Country: CA (occurrence: CA)
  Receive Date: 20240707
  Receipt Date: 20240726
  Transmission Date: 20241017
  Serious: Yes (Other)
  Sender: DR REDDYS
  Company Number: CA-E2BLSMVVAL-CLI/CAN/24/0009692

PATIENT
  Age: 78 Year
  Sex: Female

DRUGS (3)
  1. ZOLEDRONIC ACID [Suspect]
     Active Substance: ZOLEDRONIC ACID
     Indication: Osteoporosis
     Dosage: 5MG/100ML YEARLY
     Route: 065
     Dates: start: 20200619
  2. ZOLEDRONIC ACID [Suspect]
     Active Substance: ZOLEDRONIC ACID
     Dosage: 5MG/100ML YEARLY
     Route: 065
     Dates: start: 20210915
  3. ZOLEDRONIC ACID [Suspect]
     Active Substance: ZOLEDRONIC ACID
     Dosage: 5MG/100ML YEARLY
     Route: 065
     Dates: start: 20230605

REACTIONS (2)
  - Gastric ulcer haemorrhage [Unknown]
  - Product dose omission issue [Unknown]
